FAERS Safety Report 22216433 (Version 4)
Quarter: 2024Q4

REPORT INFORMATION
  Report Type: Report from Study
  Country: DE (occurrence: DE)
  Receive Date: 20230417
  Receipt Date: 20241111
  Transmission Date: 20250115
  Serious: Yes (Other)
  Sender: ROCHE
  Company Number: DE-ROCHE-2729824

PATIENT
  Age: 55 Year
  Sex: Female

DRUGS (9)
  1. OCREVUS [Suspect]
     Active Substance: OCRELIZUMAB
     Indication: Primary progressive multiple sclerosis
     Dosage: 600 MG 168, 195 DAYS
     Route: 042
     Dates: start: 20200917
  2. OCREVUS [Suspect]
     Active Substance: OCRELIZUMAB
     Dosage: THIRD INFUSION 172 DAYS
     Route: 042
     Dates: start: 20210322
  3. NABIXIMOLS [Suspect]
     Active Substance: NABIXIMOLS
     Indication: Muscle spasticity
     Route: 065
  4. AMITRIPTYLINE [Concomitant]
     Active Substance: AMITRIPTYLINE
  5. OXYCODONE [Concomitant]
     Active Substance: OXYCODONE
  6. METAMIZOLE [Concomitant]
     Active Substance: METAMIZOLE
     Dosage: UP TO FOUR TIMES PER DAY
  7. BACLOFEN [Concomitant]
     Active Substance: BACLOFEN
  8. BACLOFEN [Concomitant]
     Active Substance: BACLOFEN
  9. TIZANIDINE [Concomitant]
     Active Substance: TIZANIDINE

REACTIONS (19)
  - Rash [Recovered/Resolved]
  - Headache [Not Recovered/Not Resolved]
  - Dysphonia [Recovered/Resolved]
  - Confusional state [Not Recovered/Not Resolved]
  - Multiple sclerosis [Not Recovered/Not Resolved]
  - Aphthous ulcer [Recovered/Resolved]
  - Neuralgia [Recovered/Resolved]
  - Pain in extremity [Recovered/Resolved]
  - Ear pain [Recovered/Resolved]
  - Cough [Recovered/Resolved]
  - Muscle spasticity [Not Recovered/Not Resolved]
  - Eyelid irritation [Recovering/Resolving]
  - Insomnia [Not Recovered/Not Resolved]
  - Tinnitus [Recovered/Resolved]
  - Pancreas infection [Recovered/Resolved]
  - Vomiting [Recovered/Resolved]
  - Nausea [Recovered/Resolved]
  - Blood urine present [Recovered/Resolved]
  - Syncope [Not Recovered/Not Resolved]

NARRATIVE: CASE EVENT DATE: 20200920
